FAERS Safety Report 5665006-3 (Version None)
Quarter: 2008Q1

REPORT INFORMATION
  Report Type: 
  Country: None (occurrence: None)
  Receive Date: 20080314
  Receipt Date: 20080304
  Transmission Date: 20080703
  Serious: Yes (Other)
  Sender: FDA-Public Use
  Company Number: US-PFIZER INC-2008020446

PATIENT
  Sex: Female

DRUGS (1)
  1. GABAPENTIN [Suspect]
     Indication: CONVULSION

REACTIONS (9)
  - ALOPECIA [None]
  - CEREBRAL ISCHAEMIA [None]
  - DIPLOPIA [None]
  - EPHELIDES [None]
  - FALL [None]
  - HEART RATE DECREASED [None]
  - MALAISE [None]
  - NUCLEAR MAGNETIC RESONANCE IMAGING ABNORMAL [None]
  - VISION BLURRED [None]
